FAERS Safety Report 22585720 (Version 1)
Quarter: 2023Q2

REPORT INFORMATION
  Report Type: Spontaneous
  Country: CN (occurrence: CN)
  Receive Date: 20230610
  Receipt Date: 20230610
  Transmission Date: 20230722
  Serious: Yes (Life-Threatening, Other)
  Sender: FDA-Public Use
  Company Number: CN-BAUSCH-BL-2023-008486

PATIENT
  Age: 62 Year
  Sex: Male

DRUGS (4)
  1. TRETINOIN [Suspect]
     Active Substance: TRETINOIN
     Indication: Acute promyelocytic leukaemia
     Dosage: 6 COURSES
     Route: 065
  2. ARSENIC TRIOXIDE [Suspect]
     Active Substance: ARSENIC TRIOXIDE
     Indication: Acute promyelocytic leukaemia
     Dosage: ATRA + ARSENIC TRIOXIDE (ATO) DURING THE SECOND COURSE
     Route: 065
  3. ARSENIC TRIOXIDE [Suspect]
     Active Substance: ARSENIC TRIOXIDE
     Dosage: 4 COURSES OF ATRA + HUANGDAI TABLETS (ATO ORAL FORMS) + IDARUBICIN
     Route: 048
  4. IDARUBICIN [Suspect]
     Active Substance: IDARUBICIN
     Indication: Acute promyelocytic leukaemia
     Dosage: 4 COURSES OF ATRA + HUANGDAI TABLETS (ATO ORAL FORMS) + IDARUBICIN
     Route: 065

REACTIONS (2)
  - Cardiac failure [Unknown]
  - Drug resistance [Unknown]
